FAERS Safety Report 9107062 (Version 1)
Quarter: 2013Q1

REPORT INFORMATION
  Report Type: Spontaneous
  Country: GR (occurrence: GR)
  Receive Date: 20130221
  Receipt Date: 20130221
  Transmission Date: 20140127
  Serious: Yes (Other)
  Sender: FDA-Public Use
  Company Number: GR-BAXTER-2013BAX006037

PATIENT
  Age: 22 Month
  Sex: Female

DRUGS (8)
  1. KIOVIG [Suspect]
     Indication: KAWASAKI^S DISEASE
     Route: 042
  2. METHYLPREDNISOLONE [Concomitant]
     Indication: PRODUCT USED FOR UNKNOWN INDICATION
     Dosage: 24HRS FOR 3 CONSECUTIVE DAYS
  3. REMICADE [Concomitant]
     Indication: PRODUCT USED FOR UNKNOWN INDICATION
  4. ASPIRIN [Concomitant]
     Indication: PRODUCT USED FOR UNKNOWN INDICATION
  5. ASPIRIN [Concomitant]
  6. ABCIXIMAB [Concomitant]
     Indication: PRODUCT USED FOR UNKNOWN INDICATION
  7. PROPRANOLOL [Concomitant]
     Indication: PRODUCT USED FOR UNKNOWN INDICATION
  8. IBUPROFEN [Concomitant]
     Indication: PRODUCT USED FOR UNKNOWN INDICATION

REACTIONS (9)
  - Therapeutic response decreased [Not Recovered/Not Resolved]
  - Skin exfoliation [None]
  - Coronary artery dilatation [None]
  - Coronary artery aneurysm [None]
  - Mitral valve incompetence [None]
  - Aortic valve incompetence [None]
  - Abdominal pain [None]
  - Constipation [None]
  - Myocardial ischaemia [None]
